FAERS Safety Report 26128246 (Version 1)
Quarter: 2025Q4

REPORT INFORMATION
  Report Type: Spontaneous
  Country: EU (occurrence: EU)
  Receive Date: 20251207
  Receipt Date: 20251207
  Transmission Date: 20260117
  Serious: Yes (Other)
  Sender: ASTELLAS
  Company Number: EU-ASTELLAS-2025-AER-065721

PATIENT
  Age: 72 Year
  Sex: Female

DRUGS (9)
  1. XOSPATA [Suspect]
     Active Substance: GILTERITINIB
     Indication: Acute myeloid leukaemia recurrent
     Dosage: CYCLE 1/2
     Route: 065
     Dates: start: 202110
  2. XOSPATA [Suspect]
     Active Substance: GILTERITINIB
     Indication: FLT3 gene mutation
     Dosage: C3, C4
     Route: 065
  3. XOSPATA [Suspect]
     Active Substance: GILTERITINIB
     Dosage: C7-C10
     Route: 065
  4. XOSPATA [Suspect]
     Active Substance: GILTERITINIB
     Dosage: BRIEF INTERRUPTION OF GILTERITINIB
     Route: 065
  5. XOSPATA [Suspect]
     Active Substance: GILTERITINIB
     Dosage: C24-C30?GILTERITINIB DISCONTINUED C31
     Route: 065
  6. XOSPATA [Suspect]
     Active Substance: GILTERITINIB
     Dosage: C17-C20
     Route: 065
  7. XOSPATA [Suspect]
     Active Substance: GILTERITINIB
     Route: 065
  8. XOSPATA [Suspect]
     Active Substance: GILTERITINIB
     Dosage: C23
     Route: 065
  9. XOSPATA [Suspect]
     Active Substance: GILTERITINIB
     Dosage: C32-C35
     Route: 065

REACTIONS (12)
  - Pneumonia [Unknown]
  - Hepatotoxicity [Unknown]
  - Haematotoxicity [Unknown]
  - Leptotrichia infection [Unknown]
  - Bacterial sepsis [Unknown]
  - Gastroenteritis Escherichia coli [Unknown]
  - Immune-mediated enterocolitis [Unknown]
  - Immune-mediated enterocolitis [Unknown]
  - Pulmonary embolism [Unknown]
  - Gastrointestinal haemorrhage [Unknown]
  - Deep vein thrombosis [Unknown]
  - Spinal fusion surgery [Unknown]
